FAERS Safety Report 26204947 (Version 1)
Quarter: 2025Q4

REPORT INFORMATION
  Report Type: Spontaneous
  Country: GB (occurrence: GB)
  Receive Date: 20251227
  Receipt Date: 20251227
  Transmission Date: 20260117
  Serious: Yes (Other)
  Sender: AUROBINDO
  Company Number: GB-MHRA-MED-202512131028286600-YTJFS

PATIENT
  Age: 37 Year
  Sex: Female
  Weight: 64 kg

DRUGS (2)
  1. CIPROFLOXACIN [Suspect]
     Active Substance: CIPROFLOXACIN
     Indication: Perichondritis
     Dosage: 500 MILLIGRAM, TWO TIMES A DAY (500MG BD)
     Route: 065
     Dates: start: 20251123, end: 20251126
  2. AMOXICILLIN\CLAVULANATE POTASSIUM [Concomitant]
     Active Substance: AMOXICILLIN\CLAVULANATE POTASSIUM
     Indication: Abscess drainage
     Dosage: UNK
     Route: 065

REACTIONS (1)
  - Tendon disorder [Recovering/Resolving]

NARRATIVE: CASE EVENT DATE: 20251125
